FAERS Safety Report 6449457-5 (Version None)
Quarter: 2009Q4

REPORT INFORMATION
  Report Type: 
  Country: None (occurrence: None)
  Receive Date: 20091120
  Receipt Date: 20091109
  Transmission Date: 20100525
  Serious: Yes (Other)
  Sender: FDA-Public Use
  Company Number: PHHY2009FR40357

PATIENT
  Sex: Female

DRUGS (4)
  1. RASILEZ [Suspect]
     Dosage: UNK
     Route: 048
     Dates: start: 20090810
  2. TENORMIN [Concomitant]
     Indication: HYPERTENSION
     Dosage: 100 MG/DAY
     Route: 048
     Dates: start: 19960101
  3. HYPERIUM [Concomitant]
     Indication: HYPERTENSION
     Dosage: 2 MG /DAY
     Route: 048
     Dates: start: 19960101
  4. TENSTATEN [Concomitant]
     Indication: HYPERTENSION
     Dosage: 100 MG/DAY
     Route: 048
     Dates: start: 19960101

REACTIONS (1)
  - ORTHOSTATIC HYPOTENSION [None]
